FAERS Safety Report 8052817-2 (Version None)
Quarter: 2012Q1

REPORT INFORMATION
  Report Type: 
  Country: None (occurrence: None)
  Receive Date: 20120118
  Receipt Date: 20120112
  Transmission Date: 20120608
  Serious: Yes (Hospitalization, Other)
  Sender: FDA-Public Use
  Company Number: PHHY2011CA00801

PATIENT
  Sex: Female

DRUGS (6)
  1. TREDA [Concomitant]
     Dosage: 40 MG, QD
  2. ZOLEDRONOC ACID [Suspect]
     Indication: OSTEOPOROSIS
     Dosage: 5 MG,
     Route: 042
     Dates: start: 20090129
  3. PULMICORT [Concomitant]
     Dosage: 200 MG, BID
  4. ZOLEDRONOC ACID [Suspect]
     Dosage: 5 MG, UNK
     Route: 042
     Dates: start: 20100128
  5. NAPROSYN [Concomitant]
     Dosage: 375 MG, BID
  6. ZOLEDRONOC ACID [Suspect]
     Dosage: 5 MG, UNK
     Route: 042
     Dates: start: 20120112

REACTIONS (4)
  - SPINAL FRACTURE [None]
  - RADIUS FRACTURE [None]
  - UPPER LIMB FRACTURE [None]
  - HIP FRACTURE [None]
